FAERS Safety Report 9831285 (Version 1)
Quarter: 2014Q1

REPORT INFORMATION
  Report Type: Spontaneous
  Country: US (occurrence: US)
  Receive Date: 20140121
  Receipt Date: 20140121
  Transmission Date: 20141002
  Serious: Yes (Hospitalization)
  Sender: FDA-Public Use
  Company Number: US-BIOGENIDEC-2014BI003997

PATIENT
  Sex: Female

DRUGS (4)
  1. AVONEX [Suspect]
     Indication: MULTIPLE SCLEROSIS
     Route: 030
     Dates: start: 20130129
  2. DILTIAZEM HCL ER [Concomitant]
  3. NEURONTIN [Concomitant]
  4. EXCEDRIN PM [Concomitant]

REACTIONS (2)
  - Surgery [Unknown]
  - Pneumonia [Unknown]
